FAERS Safety Report 13477393 (Version 1)
Quarter: 2017Q2

REPORT INFORMATION
  Report Type: Spontaneous
  Country: US (occurrence: US)
  Receive Date: 20170425
  Receipt Date: 20170425
  Transmission Date: 20170830
  Serious: Yes (Other)
  Sender: FDA-Public Use
  Company Number: None

PATIENT
  Age: 34 Year
  Sex: Female
  Weight: 87.75 kg

DRUGS (2)
  1. CLINDAMYCIN. [Suspect]
     Active Substance: CLINDAMYCIN
     Indication: URINARY TRACT INFECTION
     Route: 048
     Dates: start: 20170418, end: 20170424
  2. CLINDAMYCIN. [Suspect]
     Active Substance: CLINDAMYCIN
     Indication: VAGINAL INFECTION
     Route: 048
     Dates: start: 20170418, end: 20170424

REACTIONS (1)
  - Insomnia [None]

NARRATIVE: CASE EVENT DATE: 20170420
